FAERS Safety Report 4560764-3 (Version None)
Quarter: 2005Q1

REPORT INFORMATION
  Report Type: 
  Country: None (occurrence: None)
  Receive Date: 20050124
  Receipt Date: 20050124
  Transmission Date: 20050727
  Serious: Yes (Other)
  Sender: FDA-Public Use
  Company Number: None

PATIENT
  Age: 61 Year
  Sex: Female
  Weight: 54.4316 kg

DRUGS (2)
  1. ZICAM NASAL GEL, MATRIXX INITIATIVES, INC. [Suspect]
     Indication: NASOPHARYNGITIS
     Dosage: EVERY 4 HOURS
     Dates: start: 20041201
  2. ZICAM NASAL GEL, MATRIXX INITIATIVES, INC. [Suspect]
     Indication: NASOPHARYNGITIS
     Dosage: EVERY 4 HOURS
     Dates: start: 20050101

REACTIONS (1)
  - ANOSMIA [None]
